FAERS Safety Report 18311320 (Version 1)
Quarter: 2020Q3

REPORT INFORMATION
  Report Type: Spontaneous
  Country: DE (occurrence: DE)
  Receive Date: 20200925
  Receipt Date: 20200925
  Transmission Date: 20201103
  Serious: Yes (Other)
  Sender: FDA-Public Use
  Company Number: NVSC2020DE253580

PATIENT
  Age: 78 Year

DRUGS (6)
  1. DABRAFENIB [Suspect]
     Active Substance: DABRAFENIB
     Indication: PRODUCT USED FOR UNKNOWN INDICATION
     Dosage: 50 MG, Q12H
     Route: 065
     Dates: start: 20200304
  2. GILOTRIF [Suspect]
     Active Substance: AFATINIB
     Indication: ADENOCARCINOMA
     Dosage: 30 MG, QD
     Route: 065
     Dates: start: 20170303, end: 20170522
  3. GILOTRIF [Suspect]
     Active Substance: AFATINIB
     Dosage: 20 MG, QD
     Route: 065
     Dates: start: 20170523
  4. DACOMITINIB [Suspect]
     Active Substance: DACOMITINIB
     Indication: PRODUCT USED FOR UNKNOWN INDICATION
     Dosage: 45 MG, QD
     Route: 065
     Dates: start: 20191126
  5. DACOMITINIB [Suspect]
     Active Substance: DACOMITINIB
     Dosage: 15 MG, QD
     Route: 065
     Dates: start: 20191227
  6. OSIMERTINIB. [Suspect]
     Active Substance: OSIMERTINIB
     Indication: PRODUCT USED FOR UNKNOWN INDICATION
     Dosage: 40 MG, QD
     Route: 065
     Dates: start: 20190129

REACTIONS (11)
  - Oesophageal stenosis [Unknown]
  - Toxicity to various agents [Unknown]
  - Rash [Unknown]
  - Paronychia [Unknown]
  - Diarrhoea [Unknown]
  - Rash pustular [Unknown]
  - Dyspnoea [Unknown]
  - Effusion [Unknown]
  - Malignant neoplasm of pleura [Unknown]
  - Lymphangiosis carcinomatosa [Unknown]
  - Malignant neoplasm progression [Unknown]

NARRATIVE: CASE EVENT DATE: 20181105
